FAERS Safety Report 11415102 (Version 2)
Quarter: 2015Q3

REPORT INFORMATION
  Report Type: Spontaneous
  Country: US (occurrence: US)
  Receive Date: 20150825
  Receipt Date: 20150904
  Transmission Date: 20151125
  Serious: Yes (Other)
  Sender: FDA-Public Use
  Company Number: US-BAYER-2015-402611

PATIENT
  Age: 13 Year
  Sex: Female

DRUGS (1)
  1. MIRENA [Suspect]
     Active Substance: LEVONORGESTREL
     Indication: MENSTRUAL CYCLE MANAGEMENT
     Dosage: 20 MCG/24HR, CONT
     Route: 015
     Dates: start: 201505

REACTIONS (7)
  - Off label use [None]
  - Mouth injury [None]
  - Self injurious behaviour [None]
  - Self-induced vomiting [None]
  - Abnormal behaviour [None]
  - Pharyngeal injury [None]
  - Amenorrhoea [None]

NARRATIVE: CASE EVENT DATE: 2015
